FAERS Safety Report 20714115 (Version 3)
Quarter: 2022Q4

REPORT INFORMATION
  Report Type: Spontaneous
  Country: NO (occurrence: NO)
  Receive Date: 20220415
  Receipt Date: 20221128
  Transmission Date: 20230113
  Serious: Yes (Hospitalization, Other)
  Sender: FDA-Public Use
  Company Number: NO-PFIZER INC-202200536618

PATIENT
  Age: 56 Year
  Sex: Female

DRUGS (15)
  1. NEURONTIN [Suspect]
     Active Substance: GABAPENTIN
     Indication: Abdominal pain upper
     Dosage: UNK
     Route: 065
     Dates: start: 20211027, end: 20211030
  2. TARGINIQ ER [Suspect]
     Active Substance: NALOXONE HYDROCHLORIDE\OXYCODONE HYDROCHLORIDE
     Indication: Abdominal pain upper
     Dosage: UNK
     Route: 065
     Dates: start: 20211027, end: 20211030
  3. NITRAZEPAM [Suspect]
     Active Substance: NITRAZEPAM
     Indication: Sleep disorder
     Dosage: FOR THE NIGHT
     Route: 065
  4. OXYCONTIN [Suspect]
     Active Substance: OXYCODONE HYDROCHLORIDE
     Indication: Pain
     Dosage: UNK
     Route: 065
  5. DIAZEPAM [Suspect]
     Active Substance: DIAZEPAM
     Indication: Product used for unknown indication
     Dosage: UNK, AS NEEDED
     Route: 065
  6. FENTANYL [Suspect]
     Active Substance: FENTANYL
     Indication: Pain
     Dosage: UNK
     Route: 062
  7. ACETAMINOPHEN [Concomitant]
     Active Substance: ACETAMINOPHEN
     Indication: Pain
     Dosage: UNK
     Route: 065
  8. ESOMEPRAZOLE SODIUM [Concomitant]
     Active Substance: ESOMEPRAZOLE SODIUM
     Indication: Product used for unknown indication
     Dosage: UNK
     Route: 065
  9. ACETYLSALISYLSYRE [Concomitant]
     Indication: Product used for unknown indication
     Dosage: UNK
     Route: 065
  10. SODIUM BICARBONATE [Concomitant]
     Active Substance: SODIUM BICARBONATE
     Indication: Product used for unknown indication
     Dosage: UNK
     Route: 065
  11. CELEBRA [Concomitant]
     Active Substance: CELECOXIB
     Indication: Pain
     Dosage: UNK
     Route: 065
  12. OXYCODONE HYDROCHLORIDE [Concomitant]
     Active Substance: OXYCODONE HYDROCHLORIDE
     Indication: Product used for unknown indication
     Dosage: UNK, AS NEEDED
     Route: 065
  13. Paralgin forte [Concomitant]
     Indication: Pain
     Dosage: UNK, AS NEEDED
     Route: 065
  14. VALIUM [Concomitant]
     Active Substance: DIAZEPAM
     Indication: Product used for unknown indication
     Dosage: UNK, AS NEEDED
     Route: 065
  15. MORPHINE [Concomitant]
     Active Substance: MORPHINE
     Indication: Pain
     Dosage: 420 MG
     Route: 048

REACTIONS (24)
  - Intentional overdose [Unknown]
  - Suicide attempt [Unknown]
  - Memory impairment [Recovered/Resolved]
  - Head injury [Unknown]
  - Road traffic accident [Unknown]
  - Hypnagogic hallucination [Unknown]
  - Hypothermia [Unknown]
  - Mood altered [Unknown]
  - Personality change [Recovered/Resolved]
  - Irritability [Unknown]
  - Aggression [Unknown]
  - Anger [Unknown]
  - Feeling abnormal [Unknown]
  - Social avoidant behaviour [Unknown]
  - Drug interaction [Unknown]
  - Nightmare [Unknown]
  - Loss of personal independence in daily activities [Unknown]
  - Mania [Unknown]
  - Pain [Unknown]
  - Confusional state [Unknown]
  - Insomnia [Unknown]
  - Wrong dose [Unknown]
  - Agitation [Unknown]
  - Off label use [Recovered/Resolved]

NARRATIVE: CASE EVENT DATE: 20211026
